FAERS Safety Report 6322711-3 (Version None)
Quarter: 2009Q3

REPORT INFORMATION
  Report Type: 
  Country: None (occurrence: None)
  Receive Date: 20090824
  Receipt Date: 20090309
  Transmission Date: 20100115
  Serious: No
  Sender: FDA-Public Use
  Company Number: US-ABBOTT-09P-163-0561743-00

PATIENT
  Sex: Female

DRUGS (7)
  1. NIASPAN [Suspect]
     Indication: DRUG USE FOR UNKNOWN INDICATION
     Dates: start: 20090307
  2. ZANTAC [Concomitant]
     Indication: DRUG USE FOR UNKNOWN INDICATION
  3. BIAXIN [Concomitant]
     Indication: DRUG USE FOR UNKNOWN INDICATION
  4. XANAX [Concomitant]
     Indication: DRUG USE FOR UNKNOWN INDICATION
  5. LEXAPRO [Concomitant]
     Indication: DRUG USE FOR UNKNOWN INDICATION
  6. HORMONE PATCH [Concomitant]
     Indication: DRUG USE FOR UNKNOWN INDICATION
  7. XOPENEX [Concomitant]
     Indication: DRUG USE FOR UNKNOWN INDICATION

REACTIONS (3)
  - ABDOMINAL DISCOMFORT [None]
  - ERYTHEMA [None]
  - SOMNOLENCE [None]
